FAERS Safety Report 10770732 (Version 1)
Quarter: 2015Q1

REPORT INFORMATION
  Report Type: Other
  Country: US (occurrence: US)
  Receive Date: 20150206
  Receipt Date: 20150206
  Transmission Date: 20150721
  Serious: No
  Sender: FDA-Public Use
  Company Number: US-ACORDA-ACO_104929_2014

PATIENT
  Age: 53 Year
  Sex: Female

DRUGS (1)
  1. AMPYRA [Suspect]
     Active Substance: DALFAMPRIDINE
     Indication: MULTIPLE SCLEROSIS
     Dosage: 10 MG, BID
     Route: 065

REACTIONS (7)
  - Therapy cessation [Unknown]
  - Muscular weakness [None]
  - General physical health deterioration [Unknown]
  - Activities of daily living impaired [Not Recovered/Not Resolved]
  - Joint instability [Unknown]
  - Walking aid user [Unknown]
  - Gait disturbance [Unknown]

NARRATIVE: CASE EVENT DATE: 201307
